FAERS Safety Report 6609598-6 (Version None)
Quarter: 2010Q1

REPORT INFORMATION
  Report Type: 
  Country: None (occurrence: None)
  Receive Date: 20100224
  Receipt Date: 20100216
  Transmission Date: 20100710
  Serious: Yes (Life-Threatening, Hospitalization)
  Sender: FDA-Public Use
  Company Number: SPV1-2010-00114

PATIENT
  Age: 48 Year
  Sex: Male

DRUGS (6)
  1. MEZAVANT(MESALAZINE MESALAMINE) TABLET [Suspect]
     Indication: COLITIS
     Dosage: 1200 MG, 1X/DAY:QD, ORAL
     Route: 048
     Dates: start: 20091201, end: 20091208
  2. INTRON A [Suspect]
     Indication: MALIGNANT MELANOMA IN SITU
     Dosage: 90000 IU, 1X/WEEK, SUBCUTANEOUS
     Route: 058
     Dates: start: 20090501, end: 20091204
  3. ACETAMINOPHEN [Suspect]
     Dosage: 1000 MG, 1X/WEEK, ORAL
     Route: 048
     Dates: start: 20090501, end: 20091204
  4. L-THYROXIN HENNING (LEVOTHYROXINE SODIUM) [Concomitant]
  5. VIANI (FLUTICASONE PROPIONATE, SALMETEROL XINAFOATE) [Concomitant]
  6. UREACORT (HYDROCORTISONE ACETATE, UREA) [Concomitant]

REACTIONS (1)
  - COOMBS POSITIVE HAEMOLYTIC ANAEMIA [None]
